FAERS Safety Report 5752693-4 (Version None)
Quarter: 2008Q2

REPORT INFORMATION
  Report Type: 
  Country: None (occurrence: None)
  Receive Date: 20080527
  Receipt Date: 20080527
  Transmission Date: 20081010
  Serious: Yes (Life-Threatening, Hospitalization)
  Sender: FDA-Public Use
  Company Number: None

PATIENT
  Age: 51 Year
  Sex: Male
  Weight: 120.2032 kg

DRUGS (1)
  1. REGLAN [Suspect]
     Indication: ABDOMINAL PAIN UPPER
     Dosage: ONE DAILY
     Dates: start: 20070815, end: 20070915

REACTIONS (3)
  - INCORRECT DOSE ADMINISTERED [None]
  - PSYCHOTIC DISORDER [None]
  - SUICIDE ATTEMPT [None]
